FAERS Safety Report 8323785 (Version 2)
Quarter: 2013Q1

REPORT INFORMATION
  Report Type: Spontaneous
  Country: US (occurrence: US)
  Receive Date: 20120105
  Receipt Date: 20130103
  Transmission Date: 20140127
  Serious: No
  Sender: FDA-Public Use
  Company Number: US-ABBOTT-11P-163-0725855-00

PATIENT
  Sex: Female
  Weight: 57.2 kg

DRUGS (2)
  1. SYNTHROID [Suspect]
     Indication: HYPOTHYROIDISM
  2. ELMIRON [Concomitant]
     Indication: CYSTITIS INTERSTITIAL

REACTIONS (5)
  - Feeling cold [Not Recovered/Not Resolved]
  - Onychoclasis [Not Recovered/Not Resolved]
  - Acne cystic [Not Recovered/Not Resolved]
  - Fatigue [Not Recovered/Not Resolved]
  - Product quality issue [Unknown]
